FAERS Safety Report 19718764 (Version 1)
Quarter: 2021Q3

REPORT INFORMATION
  Report Type: Spontaneous
  Country: US (occurrence: US)
  Receive Date: 20210819
  Receipt Date: 20210819
  Transmission Date: 20211014
  Serious: Yes (Other)
  Sender: FDA-Public Use
  Company Number: US-GLAXOSMITHKLINE-US2021GSK172841

PATIENT
  Sex: Female

DRUGS (4)
  1. RANITIDINE. [Suspect]
     Active Substance: RANITIDINE
     Indication: DYSPEPSIA
     Dosage: 40 MG, BID
     Route: 065
     Dates: start: 200102, end: 201805
  2. RANITIDINE. [Suspect]
     Active Substance: RANITIDINE
     Indication: ASTHMA
  3. RANITIDINE. [Suspect]
     Active Substance: RANITIDINE
     Indication: DYSPEPSIA
     Dosage: 40 MG, BID
     Route: 065
     Dates: start: 200102, end: 201805
  4. RANITIDINE. [Suspect]
     Active Substance: RANITIDINE
     Indication: ASTHMA

REACTIONS (1)
  - Lung neoplasm malignant [Unknown]
